FAERS Safety Report 16763970 (Version 1)
Quarter: 2019Q3

REPORT INFORMATION
  Report Type: Spontaneous
  Country: EG (occurrence: EG)
  Receive Date: 20190902
  Receipt Date: 20190902
  Transmission Date: 20191005
  Serious: Yes (Hospitalization, Other)
  Sender: FDA-Public Use
  Company Number: EG-PFIZER INC-2019372198

PATIENT
  Age: 33 Year
  Sex: Male

DRUGS (4)
  1. ETOPUL [Suspect]
     Active Substance: ETOPOSIDE
     Indication: MANTLE CELL LYMPHOMA
     Dosage: 120 MG  (4 PER 1 CYCLIC)
     Route: 041
     Dates: start: 20180510, end: 20180514
  2. SOLU-MEDROL [Suspect]
     Active Substance: METHYLPREDNISOLONE SODIUM SUCCINATE
     Indication: MANTLE CELL LYMPHOMA
     Dosage: 500 MG (4 PER 1 CYCLIC)
     Route: 041
     Dates: start: 20180510, end: 20180514
  3. TABINE [Concomitant]
     Active Substance: CYTARABINE
     Indication: MANTLE CELL LYMPHOMA
     Dosage: 4000 MG (1MPER 1 CYCLIC)
     Route: 041
     Dates: start: 20180510, end: 20180510
  4. CYTOPLATIN [Suspect]
     Active Substance: CISPLATIN
     Indication: MANTLE CELL LYMPHOMA
     Dosage: 50 MG  (4 PER 1 CYCLIC)
     Route: 041
     Dates: start: 20180510, end: 20180514

REACTIONS (3)
  - Haemorrhage [Recovered/Resolved]
  - Pyrexia [Recovered/Resolved]
  - Diarrhoea [Recovered/Resolved]

NARRATIVE: CASE EVENT DATE: 20180514
